FAERS Safety Report 7268961-3 (Version None)
Quarter: 2011Q1

REPORT INFORMATION
  Report Type: 
  Country: None (occurrence: None)
  Receive Date: 20110201
  Receipt Date: 20110127
  Transmission Date: 20110831
  Serious: Yes (Hospitalization, Other)
  Sender: FDA-Public Use
  Company Number: US-PFIZER INC-2011000911

PATIENT
  Sex: Female

DRUGS (18)
  1. FEXOFENADINE [Concomitant]
     Indication: ASTHMA
  2. ESTROGENS [Concomitant]
     Indication: MENOPAUSE
     Dosage: UNK
  3. SUCRALFATE [Concomitant]
     Indication: DYSPEPSIA
     Dosage: UNK
     Route: 048
  4. NEXIUM [Concomitant]
     Indication: GASTRIC DISORDER
     Dosage: 80 MG, 2X/DAY
     Route: 048
  5. MONTELUKAST SODIUM [Concomitant]
     Indication: CHRONIC OBSTRUCTIVE PULMONARY DISEASE
     Dosage: 10 MG, 1X/DAY
  6. FEXOFENADINE [Concomitant]
     Indication: HYPERSENSITIVITY
     Dosage: 60 MG, 1X/DAY
     Route: 048
  7. COMBIVENT [Concomitant]
     Indication: ASTHMA
     Dosage: UNK
  8. OXYGEN [Concomitant]
     Dosage: UNK
  9. PRAVASTATIN SODIUM [Concomitant]
     Indication: BLOOD CHOLESTEROL INCREASED
     Dosage: 80 MG, 1X/DAY
     Route: 048
  10. SOLU-MEDROL [Suspect]
     Indication: PNEUMONIA
     Dosage: UNK
     Route: 042
  11. TOPIRAMATE [Concomitant]
     Indication: PAIN
     Dosage: 25 MG, 3X/DAY
     Route: 048
  12. LEXAPRO [Concomitant]
     Indication: DEPRESSION
     Dosage: 30 MG, 1X/DAY
     Route: 048
  13. CLONAZEPAM [Concomitant]
     Indication: PANIC ATTACK
     Dosage: 1 MG, 3X/DAY
     Route: 048
  14. ADVAIR [Concomitant]
     Indication: ASTHMA
     Dosage: 115/21 MCG 4X/DAY
  15. OXYCODONE [Concomitant]
     Dosage: 25 MG, 4X/DAY
  16. CHANTIX [Suspect]
     Indication: SMOKING CESSATION THERAPY
     Dosage: UNK
     Route: 048
     Dates: end: 20110101
  17. PREDNISONE [Suspect]
     Indication: PNEUMONIA
     Dosage: UNK
     Route: 042
  18. FENTANYL [Concomitant]
     Indication: PAIN
     Dosage: 75 MG, EVERY 3 DAYS
     Route: 062

REACTIONS (5)
  - DEPRESSION [None]
  - AMNESIA [None]
  - INTERVERTEBRAL DISC DEGENERATION [None]
  - LUNG DISORDER [None]
  - SUICIDAL IDEATION [None]
